FAERS Safety Report 8115763-1 (Version None)
Quarter: 2012Q1

REPORT INFORMATION
  Report Type: 
  Country: None (occurrence: None)
  Receive Date: 20120206
  Receipt Date: 20120126
  Transmission Date: 20120608
  Serious: Yes (Death, Hospitalization, Other)
  Sender: FDA-Public Use
  Company Number: MX-SANOFI-AVENTIS-2012SA005858

PATIENT
  Age: 74 Year
  Sex: Male

DRUGS (6)
  1. LANTUS [Suspect]
     Dosage: DOSE: 14 U TO 20 U DEPENDING ON GLUCOSE LEVELS
     Route: 058
     Dates: start: 20070101, end: 20110301
  2. HIZAAR [Concomitant]
     Route: 048
     Dates: end: 20110301
  3. PLAVIX [Suspect]
     Indication: THROMBOSIS PROPHYLAXIS
     Route: 048
     Dates: start: 20030101, end: 20110301
  4. ATORVASTATIN [Concomitant]
     Route: 048
     Dates: start: 19920101, end: 20110301
  5. METFORMIN HCL [Concomitant]
     Indication: TYPE 2 DIABETES MELLITUS
     Route: 048
     Dates: start: 19920101, end: 20110301
  6. FOLIC ACID [Concomitant]
     Route: 048
     Dates: end: 20110302

REACTIONS (2)
  - RENAL FAILURE [None]
  - DISEASE COMPLICATION [None]
